FAERS Safety Report 12436007 (Version 1)
Quarter: 2016Q2

REPORT INFORMATION
  Report Type: Report from Study
  Country: GB (occurrence: GB)
  Receive Date: 20160604
  Receipt Date: 20160604
  Transmission Date: 20160815
  Serious: Yes (Hospitalization)
  Sender: FDA-Public Use
  Company Number: GB-CELGENEUS-GBR-2015021729

PATIENT
  Age: 53 Year
  Sex: Female

DRUGS (4)
  1. CYCLOPHOSPHAMIDE. [Suspect]
     Active Substance: CYCLOPHOSPHAMIDE
     Indication: PLASMA CELL MYELOMA
     Route: 048
     Dates: start: 20141028, end: 20150202
  2. REVLIMID [Suspect]
     Active Substance: LENALIDOMIDE
     Indication: PLASMA CELL MYELOMA
     Dosage: 25 MILLIGRAM
     Route: 048
     Dates: start: 20141028, end: 20150202
  3. DEXAMETHASONE. [Suspect]
     Active Substance: DEXAMETHASONE
     Indication: PLASMA CELL MYELOMA
     Route: 048
     Dates: start: 20141028, end: 20150202
  4. CARFILZOMIB [Suspect]
     Active Substance: CARFILZOMIB
     Indication: PLASMA CELL MYELOMA
     Route: 041
     Dates: start: 20141028, end: 20150202

REACTIONS (7)
  - Urinary tract infection bacterial [Recovered/Resolved with Sequelae]
  - Fall [Recovered/Resolved with Sequelae]
  - Deep vein thrombosis [Unknown]
  - Device related infection [Recovered/Resolved]
  - Febrile neutropenia [Recovered/Resolved with Sequelae]
  - Ankle fracture [Recovered/Resolved with Sequelae]
  - Pulmonary embolism [Unknown]

NARRATIVE: CASE EVENT DATE: 20150202
